FAERS Safety Report 10231828 (Version 1)
Quarter: 2014Q2

REPORT INFORMATION
  Report Type: Spontaneous
  Country: BR (occurrence: BR)
  Receive Date: 20140612
  Receipt Date: 20140612
  Transmission Date: 20141212
  Serious: Yes (Hospitalization, Other)
  Sender: FDA-Public Use
  Company Number: BR-AMGEN INC.-BRASP2014043462

PATIENT
  Age: 74 Year
  Sex: Female
  Weight: 58 kg

DRUGS (3)
  1. ENBREL [Suspect]
     Indication: RHEUMATOID ARTHRITIS
     Dosage: 50 MG, ONCE WEEKLY
     Route: 058
     Dates: start: 2013
  2. SIMVAX [Concomitant]
     Dosage: 20 MG, 1X/DAY
  3. OMEPRAZOLE [Concomitant]
     Dosage: UNSPECIFIED DOSE, 1X/DAY

REACTIONS (2)
  - Femur fracture [Recovering/Resolving]
  - Fall [Unknown]
